FAERS Safety Report 6079634-7 (Version None)
Quarter: 2009Q1

REPORT INFORMATION
  Report Type: 
  Country: None (occurrence: None)
  Receive Date: 20090211
  Receipt Date: 20090204
  Transmission Date: 20090719
  Serious: Yes (Death, Life-Threatening, Other)
  Sender: FDA-Public Use
  Company Number: 2008JP003553

PATIENT
  Age: 61 Year
  Sex: Female
  Weight: 43.1 kg

DRUGS (9)
  1. PROGRAF [Suspect]
     Indication: APLASIA PURE RED CELL
     Dosage: 4 MG, UID/QD, ORAL
     Route: 048
     Dates: start: 20060120, end: 20080309
  2. PREDNISOLONE [Concomitant]
  3. LEVOFLOXACIN [Concomitant]
  4. PANIPENEM (PANIPENEM) [Concomitant]
  5. VANCOMYCIN [Concomitant]
  6. DEXAMETHASONE TAB [Concomitant]
  7. CEFTRIAXONE [Concomitant]
  8. METOPROLOL TARTRATE [Concomitant]
  9. LOSARTAN POTASSIUM [Concomitant]

REACTIONS (12)
  - AORTIC VALVE INCOMPETENCE [None]
  - CARDIAC FAILURE CONGESTIVE [None]
  - CARDIAC MURMUR [None]
  - CARDIAC VALVE VEGETATION [None]
  - CONTINUOUS HAEMODIAFILTRATION [None]
  - ENDOCARDITIS [None]
  - ESCHERICHIA BACTERAEMIA [None]
  - MENINGITIS BACTERIAL [None]
  - PERICARDIAL EFFUSION [None]
  - PNEUMONIA [None]
  - RENAL FAILURE [None]
  - URINARY TRACT INFECTION [None]
